FAERS Safety Report 11927244 (Version 1)
Quarter: 2016Q1

REPORT INFORMATION
  Report Type: Spontaneous
  Country: US (occurrence: None)
  Receive Date: 20160115
  Receipt Date: 20160115
  Transmission Date: 20160526
  Serious: Yes (Hospitalization)
  Sender: FDA-Public Use
  Company Number: None

PATIENT
  Age: 50 Year
  Sex: Female
  Weight: 54.43 kg

DRUGS (3)
  1. REMICADE [Suspect]
     Active Substance: INFLIXIMAB
     Indication: CROHN^S DISEASE
     Route: 042
  2. MERCAOTIPURINE [Concomitant]
  3. INTRACONAZOLE [Concomitant]

REACTIONS (4)
  - Histoplasmosis [None]
  - Influenza like illness [None]
  - Weight decreased [None]
  - Dyspnoea [None]
